FAERS Safety Report 10353746 (Version 1)
Quarter: 2014Q3

REPORT INFORMATION
  Report Type: Spontaneous
  Country: US (occurrence: None)
  Receive Date: 20140729
  Receipt Date: 20140729
  Transmission Date: 20150326
  Serious: No
  Sender: FDA-Public Use
  Company Number: None

PATIENT
  Age: 67 Year
  Sex: Female
  Weight: 81.65 kg

DRUGS (1)
  1. PREDNISONE. [Suspect]
     Active Substance: PREDNISONE
     Indication: ALLERGY TO ARTHROPOD BITE
     Dosage: 6 PILLS ONCE DAILY TAKEN BY MOUTH
     Route: 048
     Dates: start: 20140721, end: 20140722

REACTIONS (6)
  - Anxiety [None]
  - Confusional state [None]
  - Panic reaction [None]
  - Dizziness [None]
  - Urticaria [None]
  - Depression [None]

NARRATIVE: CASE EVENT DATE: 20140722
